FAERS Safety Report 5215901-4 (Version None)
Quarter: 2007Q1

REPORT INFORMATION
  Report Type: 
  Country: None (occurrence: None)
  Receive Date: 20070123
  Receipt Date: 20070112
  Transmission Date: 20070707
  Serious: Yes (Hospitalization, Other)
  Sender: FDA-Public Use
  Company Number: US-MERCK-0608USA02281

PATIENT
  Age: 61 Year
  Sex: Male
  Weight: 59 kg

DRUGS (5)
  1. ZOCOR [Suspect]
     Indication: HYPERLIPIDAEMIA
     Route: 048
     Dates: start: 20050215, end: 20050501
  2. ASPIRIN [Suspect]
     Route: 065
     Dates: start: 20050215
  3. PLAVIX [Suspect]
     Route: 065
  4. CLARITHROMYCIN [Suspect]
     Route: 065
     Dates: start: 20050401
  5. AMOXICILLIN [Suspect]
     Route: 065
     Dates: start: 20050401

REACTIONS (11)
  - ANKYLOSING SPONDYLITIS [None]
  - BLINDNESS UNILATERAL [None]
  - CAROTID ARTERY OCCLUSION [None]
  - CHOLECYSTITIS [None]
  - DUODENAL ULCER HAEMORRHAGE [None]
  - HAEMOBILIA [None]
  - HELICOBACTER PYLORI IDENTIFICATION TEST POSITIVE [None]
  - RENAL FAILURE ACUTE [None]
  - RHABDOMYOLYSIS [None]
  - THROMBOCYTOPENIA [None]
  - TRANSIENT ISCHAEMIC ATTACK [None]
